FAERS Safety Report 21179671 (Version 2)
Quarter: 2022Q3

REPORT INFORMATION
  Report Type: Spontaneous
  Country: FR (occurrence: FR)
  Receive Date: 20220805
  Receipt Date: 20220908
  Transmission Date: 20221026
  Serious: Yes (Hospitalization, Other)
  Sender: FDA-Public Use
  Company Number: FR-ROCHE-3113416

PATIENT
  Age: 67 Year
  Sex: Female

DRUGS (23)
  1. CYTARABINE [Suspect]
     Active Substance: CYTARABINE
     Indication: Follicular lymphoma
     Dosage: UNK
     Route: 065
  2. BENDAMUSTINE HYDROCHLORIDE [Suspect]
     Active Substance: BENDAMUSTINE HYDROCHLORIDE
     Indication: Follicular lymphoma
     Dosage: UNK
     Route: 065
  3. CISPLATIN [Suspect]
     Active Substance: CISPLATIN
     Indication: Follicular lymphoma
     Dosage: UNK
     Route: 065
  4. RITUXIMAB [Suspect]
     Active Substance: RITUXIMAB
     Indication: Follicular lymphoma
     Dosage: UNK (CYCLICAL)
     Route: 065
  5. RITUXIMAB [Suspect]
     Active Substance: RITUXIMAB
     Indication: Follicular lymphoma stage IV
     Dosage: UNK(CYCLICAL,AS PART OF R-CHOP; R-DHAC REGIMEN AND ALONG WITH LENALIDOMIDE)
     Route: 065
  6. CYCLOPHOSPHAMIDE [Suspect]
     Active Substance: CYCLOPHOSPHAMIDE
     Indication: Follicular lymphoma
     Dosage: UNK
     Route: 065
  7. CYCLOPHOSPHAMIDE [Suspect]
     Active Substance: CYCLOPHOSPHAMIDE
     Indication: Follicular lymphoma stage IV
     Dosage: UNK(CYCLICAL,RECEIVED 6 CYCLES; PART OF R-CHOP)
     Route: 065
  8. PREDNISONE [Suspect]
     Active Substance: PREDNISONE
     Indication: Follicular lymphoma stage IV
     Dosage: UNK(CYCLICAL,RECEIVED 6 CYCLES; AS PART OF R-CHOP REGIMEN)
     Route: 065
  9. DEXAMETHASONE [Suspect]
     Active Substance: DEXAMETHASONE
     Indication: Follicular lymphoma stage IV
     Dosage: UNK(CYCLICAL,RECEIVED FOUR CYCLES; PART OF R-DHAC REGIMEN )
     Route: 065
  10. VINCRISTINE [Suspect]
     Active Substance: VINCRISTINE
     Indication: Follicular lymphoma
     Dosage: UNK
     Route: 065
  11. VINCRISTINE [Suspect]
     Active Substance: VINCRISTINE
     Indication: Follicular lymphoma stage IV
     Dosage: UNK(CYCLICAL,RECEIVED 6 CYCLES; AS PART OF R-CHOP REGIMEN)
     Route: 065
  12. ERYTHROPOIETIN [Concomitant]
     Active Substance: ERYTHROPOIETIN
     Indication: Anaemia
     Dosage: UNK
     Route: 065
  13. DOXORUBICIN [Concomitant]
     Active Substance: DOXORUBICIN
     Indication: Follicular lymphoma
     Dosage: UNK
     Route: 065
  14. DOXORUBICIN [Concomitant]
     Active Substance: DOXORUBICIN
     Indication: Follicular lymphoma stage IV
     Dosage: UNK(CYCLICAL,RECEIVED 6 CYCLES; PART OF R-CHOP)
     Route: 065
  15. CARBOPLATIN [Concomitant]
     Active Substance: CARBOPLATIN
     Indication: Follicular lymphoma stage IV
     Dosage: UNK(CYCLICAL,RECEIVED 4 CYCLES; AS PART OF R-DHAC REGIMEN)
     Route: 065
  16. OBINUTUZUMAB [Concomitant]
     Active Substance: OBINUTUZUMAB
     Indication: Follicular lymphoma
     Dosage: UNK
     Route: 065
  17. OBINUTUZUMAB [Concomitant]
     Active Substance: OBINUTUZUMAB
     Indication: Follicular lymphoma stage IV
     Dosage: UNK(CYCLICAL,RECEIVED 6CYCLES)
     Route: 065
  18. BENDAMUSTINE [Concomitant]
     Active Substance: BENDAMUSTINE
     Indication: Follicular lymphoma stage IV
     Dosage: UNK(CYCILICAL,RECEIVED 6 CYCLES)
     Route: 065
  19. REVLIMID [Concomitant]
     Active Substance: LENALIDOMIDE
     Indication: Follicular lymphoma
     Dosage: UNK
     Route: 065
  20. REVLIMID [Concomitant]
     Active Substance: LENALIDOMIDE
     Indication: Follicular lymphoma stage IV
     Dosage: UNK(CYCLICAL,RECEIVED 5 CYCLES)
     Route: 065
  21. IDELALISIB [Concomitant]
     Active Substance: IDELALISIB
     Indication: Follicular lymphoma
     Dosage: UNK
     Route: 065
  22. IDELALISIB [Concomitant]
     Active Substance: IDELALISIB
     Indication: Follicular lymphoma stage IV
  23. CYTARABINE [Concomitant]
     Active Substance: CYTARABINE
     Indication: Follicular lymphoma stage IV
     Dosage: UNK(CYCLICAL,RECEIVED 4 CYCLES; AS PART OF R-DHAC REGIMEN)
     Route: 065

REACTIONS (14)
  - Asthenia [Unknown]
  - Drug ineffective [Unknown]
  - Weight decreased [Unknown]
  - Multisystem inflammatory syndrome [Unknown]
  - Bicytopenia [Unknown]
  - Tachyarrhythmia [Unknown]
  - Hyperleukocytosis [Unknown]
  - Hypogammaglobulinaemia [Unknown]
  - Thrombocytopenia [Unknown]
  - Borrelia infection [Recovering/Resolving]
  - Blood pressure abnormal [Unknown]
  - White blood cell count increased [Unknown]
  - C-reactive protein increased [Recovered/Resolved]
  - Haemoglobin decreased [Unknown]
